FAERS Safety Report 22000609 (Version 1)
Quarter: 2023Q1

REPORT INFORMATION
  Report Type: Spontaneous
  Country: US (occurrence: None)
  Receive Date: 20230215
  Receipt Date: 20230215
  Transmission Date: 20230417
  Serious: Yes (Other)
  Sender: FDA-Public Use
  Company Number: None

PATIENT
  Age: 39 Year
  Sex: Female
  Weight: 72 kg

DRUGS (9)
  1. LOSARTAN [Suspect]
     Active Substance: LOSARTAN
     Dates: start: 20210921, end: 20230213
  2. VISTARIL [Suspect]
     Active Substance: HYDROXYZINE PAMOATE
  3. BENADRYL [Suspect]
     Active Substance: DIPHENHYDRAMINE HYDROCHLORIDE
  4. CELEXA [Suspect]
     Active Substance: CITALOPRAM HYDROBROMIDE
  5. BUSPAR [Suspect]
     Active Substance: BUSPIRONE HYDROCHLORIDE
  6. DIAZEPAM [Suspect]
     Active Substance: DIAZEPAM
  7. ZOLOFT [Suspect]
     Active Substance: SERTRALINE HYDROCHLORIDE
  8. XANAX [Suspect]
     Active Substance: ALPRAZOLAM
  9. TRAZODONE [Suspect]
     Active Substance: TRAZODONE HYDROCHLORIDE

REACTIONS (16)
  - Chest discomfort [None]
  - Dizziness [None]
  - Back pain [None]
  - Nasal congestion [None]
  - Paranasal sinus discomfort [None]
  - Tinnitus [None]
  - Heart rate irregular [None]
  - Chest pain [None]
  - Tinnitus [None]
  - Tinnitus [None]
  - Depression [None]
  - Decreased appetite [None]
  - Hunger [None]
  - Crying [None]
  - Nasopharyngitis [None]
  - Insomnia [None]

NARRATIVE: CASE EVENT DATE: 20210921
